FAERS Safety Report 8786167 (Version 1)
Quarter: 2012Q4

REPORT INFORMATION
  Report Type: 
  Country: US (occurrence: US)
  Receive Date: 20120914
  Receipt Date: 20120914
  Transmission Date: 20130627
  Serious: No
  Sender: FDA-Public Use
  Company Number: US-ASTRAZENECA-2012SE61198

PATIENT
  Age: 51 Year
  Sex: Male

DRUGS (8)
  1. CAPRELSA [Suspect]
     Route: 048
     Dates: start: 20120714
  2. BENADRYL [Concomitant]
  3. COMPAZINE [Concomitant]
  4. HYDROCORTISONE [Concomitant]
  5. MILK THISTLE [Concomitant]
  6. VITAMIN C [Concomitant]
  7. VITAMIN E [Concomitant]
  8. CALCIUM + D [Concomitant]

REACTIONS (2)
  - Paraesthesia [Unknown]
  - Fatigue [Unknown]
